FAERS Safety Report 17668974 (Version 5)
Quarter: 2021Q3

REPORT INFORMATION
  Report Type: Report from Study
  Country: US (occurrence: US)
  Receive Date: 20200415
  Receipt Date: 20210806
  Transmission Date: 20211014
  Serious: Yes (Hospitalization, Other)
  Sender: FDA-Public Use
  Company Number: US-EMD SERONO-9156829

PATIENT
  Age: 51 Year
  Sex: Female

DRUGS (6)
  1. TYLENOL [Concomitant]
     Active Substance: ACETAMINOPHEN
     Indication: PREMEDICATION
  2. REBIF [Suspect]
     Active Substance: INTERFERON BETA-1A
     Route: 058
     Dates: start: 20180831, end: 20181228
  3. REBIF [Suspect]
     Active Substance: INTERFERON BETA-1A
     Route: 058
     Dates: start: 20140926, end: 20141103
  4. REBIF [Suspect]
     Active Substance: INTERFERON BETA-1A
     Indication: MULTIPLE SCLEROSIS
     Route: 058
     Dates: start: 20111103, end: 20120430
  5. REBIF [Suspect]
     Active Substance: INTERFERON BETA-1A
     Route: 058
     Dates: start: 20191007
  6. METFORMIN [Concomitant]
     Active Substance: METFORMIN HYDROCHLORIDE
     Indication: DIABETES MELLITUS

REACTIONS (21)
  - Fatigue [Unknown]
  - Ocular sarcoidosis [Unknown]
  - Cataract [Not Recovered/Not Resolved]
  - Optic neuritis [Unknown]
  - Multiple sclerosis [Unknown]
  - Chest pain [Unknown]
  - Gallbladder hypofunction [Unknown]
  - Condition aggravated [Unknown]
  - Multiple sclerosis [Unknown]
  - Hemiparesis [Unknown]
  - Secondary progressive multiple sclerosis [Not Recovered/Not Resolved]
  - Adverse drug reaction [Unknown]
  - Lymphoedema [Unknown]
  - Cervical spinal stenosis [Unknown]
  - Glaucoma [Not Recovered/Not Resolved]
  - Laboratory test abnormal [Unknown]
  - Post procedural fever [Unknown]
  - Intervertebral disc protrusion [Unknown]
  - Pulmonary embolism [Unknown]
  - Lumbar spinal stenosis [Unknown]
  - Gait disturbance [Unknown]

NARRATIVE: CASE EVENT DATE: 2011
